FAERS Safety Report 16454742 (Version 1)
Quarter: 2019Q2

REPORT INFORMATION
  Report Type: Spontaneous
  Country: US (occurrence: US)
  Receive Date: 20190619
  Receipt Date: 20190619
  Transmission Date: 20190711
  Serious: Yes (Other)
  Sender: FDA-Public Use
  Company Number: US-ROCHE-2160215

PATIENT
  Sex: Male

DRUGS (15)
  1. ALBUTEROL SULFATE. [Concomitant]
     Active Substance: ALBUTEROL SULFATE
  2. LEVOFLOXACIN. [Concomitant]
     Active Substance: LEVOFLOXACIN
     Route: 065
  3. ACTEMRA [Suspect]
     Active Substance: TOCILIZUMAB
     Indication: RHEUMATOID ARTHRITIS
     Dosage: 162MG/0.9ML; PFS
     Route: 058
  4. FISH OIL [Concomitant]
     Active Substance: FISH OIL
     Route: 065
  5. METHYLPREDNISOLONE. [Concomitant]
     Active Substance: METHYLPREDNISOLONE
     Route: 065
  6. FOLIC ACID. [Concomitant]
     Active Substance: FOLIC ACID
     Route: 065
  7. ALLOPURINOL. [Concomitant]
     Active Substance: ALLOPURINOL
     Route: 065
  8. MILK THISTLE [SILYBUM MARIANUM] [Concomitant]
  9. METHOTREXATE. [Concomitant]
     Active Substance: METHOTREXATE
  10. AZITHROMYCIN ANHYDROUS. [Concomitant]
     Active Substance: AZITHROMYCIN ANHYDROUS
     Route: 065
  11. LOSARTAN POTASSIUM. [Concomitant]
     Active Substance: LOSARTAN POTASSIUM
  12. PREDNISONE. [Concomitant]
     Active Substance: PREDNISONE
  13. BENZONATATE. [Concomitant]
     Active Substance: BENZONATATE
     Route: 065
  14. COLCRYS [Concomitant]
     Active Substance: COLCHICINE
     Route: 065
  15. MELOXICAM. [Concomitant]
     Active Substance: MELOXICAM
     Route: 065

REACTIONS (2)
  - Ear infection [Not Recovered/Not Resolved]
  - Skin discolouration [Not Recovered/Not Resolved]
